FAERS Safety Report 8949687 (Version 2)
Quarter: 2013Q1

REPORT INFORMATION
  Report Type: Spontaneous
  Country: IN (occurrence: IN)
  Receive Date: 20121206
  Receipt Date: 20130129
  Transmission Date: 20140127
  Serious: Yes (Death, Other)
  Sender: FDA-Public Use
  Company Number: PHHY2012IN112020

PATIENT
  Age: 34 Year
  Sex: Male

DRUGS (3)
  1. CICLOSPORIN [Suspect]
     Indication: HISTIOCYTOSIS HAEMATOPHAGIC
  2. ETOPOSIDE [Suspect]
  3. STEROIDS NOS [Suspect]
     Indication: HISTIOCYTOSIS HAEMATOPHAGIC

REACTIONS (2)
  - Histiocytosis haematophagic [Fatal]
  - Drug ineffective [Unknown]
